FAERS Safety Report 24418789 (Version 3)
Quarter: 2024Q4

REPORT INFORMATION
  Report Type: Spontaneous
  Country: SI (occurrence: SI)
  Receive Date: 20241009
  Receipt Date: 20241114
  Transmission Date: 20250115
  Serious: Yes (Hospitalization)
  Sender: ABBVIE
  Company Number: SI-ABBVIE-5956275

PATIENT
  Age: 44 Year
  Sex: Male
  Weight: 77 kg

DRUGS (8)
  1. RINVOQ [Suspect]
     Active Substance: UPADACITINIB
     Indication: Colitis ulcerative
     Dosage: 45 MILLIGRAM
     Route: 048
     Dates: start: 20240507, end: 20240809
  2. METHYLPREDNISOLONE [Concomitant]
     Active Substance: METHYLPREDNISOLONE
     Indication: Colitis ulcerative
     Route: 048
     Dates: start: 20240623
  3. URSODIOL [Concomitant]
     Active Substance: URSODIOL
     Indication: Cholangitis sclerosing
     Dates: start: 1999
  4. levoceterizine [Concomitant]
     Indication: Multiple allergies
     Dosage: TIME INTERVAL: AS NECESSARY
     Route: 048
  5. IVABRADINE [Concomitant]
     Active Substance: IVABRADINE
     Indication: Tachycardia
     Route: 048
  6. CALCIUM [Concomitant]
     Active Substance: CALCIUM
     Indication: Osteoporosis prophylaxis
     Route: 048
     Dates: start: 20240623
  7. VITAMIN D [Concomitant]
     Active Substance: VITAMIN D NOS
     Indication: Osteoporosis prophylaxis
     Route: 048
     Dates: start: 20240623
  8. INDAPAMIDE\PERINDOPRIL [Concomitant]
     Active Substance: INDAPAMIDE\PERINDOPRIL
     Indication: Hypertension
     Dosage: 5 +1,25 MG
     Route: 048

REACTIONS (1)
  - Peripheral ischaemia [Unknown]

NARRATIVE: CASE EVENT DATE: 20240805
